FAERS Safety Report 10187780 (Version 1)
Quarter: 2014Q2

REPORT INFORMATION
  Report Type: Spontaneous
  Country: US (occurrence: US)
  Receive Date: 20140522
  Receipt Date: 20140522
  Transmission Date: 20141212
  Serious: No
  Sender: FDA-Public Use
  Company Number: US-SANOFI-AVENTIS-2013SA090523

PATIENT
  Age: 54 Year
  Sex: Male

DRUGS (2)
  1. LANTUS [Suspect]
     Indication: DIABETES MELLITUS
     Dosage: TAKEN FROM: 2 YEARS AGO DOSE:35 UNIT(S)
     Route: 051
  2. METFORMIN [Concomitant]
     Route: 065

REACTIONS (2)
  - Injection site rash [Recovered/Resolved]
  - Injection site pain [Recovered/Resolved]
